FAERS Safety Report 8238472-7 (Version None)
Quarter: 2012Q1

REPORT INFORMATION
  Report Type: 
  Country: None (occurrence: None)
  Receive Date: 20120323
  Receipt Date: 20120316
  Transmission Date: 20120608
  Serious: Yes (Death, Life-Threatening, Hospitalization)
  Sender: FDA-Public Use
  Company Number: 2012SP008842

PATIENT
  Age: 70 Year
  Sex: Female
  Weight: 67 kg

DRUGS (12)
  1. NEXIUM [Concomitant]
  2. LASIX [Concomitant]
  3. PRAVASTIN [Concomitant]
  4. MEDROL [Suspect]
     Dosage: 48 MG;QD;PO 32 MG
     Route: 048
  5. FUNGIZONE [Concomitant]
  6. LOVENOX [Concomitant]
  7. TEMODAL [Suspect]
     Indication: GLIOBLASTOMA
     Dosage: PO
     Route: 048
     Dates: start: 20120111, end: 20120213
  8. RAMIPRIL [Concomitant]
  9. BEVACIZUMAB (BEVACIZUMAB) [Suspect]
     Indication: GLIOBLASTOMA
     Dosage: 10 MG/KG
     Dates: start: 20120111, end: 20120208
  10. POTASSIUM CHLORIDE [Concomitant]
  11. ACTRAPID [Concomitant]
  12. ACETAMINOPHEN [Concomitant]

REACTIONS (17)
  - PNEUMOPERITONEUM [None]
  - ASTHENIA [None]
  - PLEURAL EFFUSION [None]
  - HYPERTHERMIA [None]
  - RENAL IMPAIRMENT [None]
  - PYREXIA [None]
  - RASH MACULAR [None]
  - BLADDER DISORDER [None]
  - DYSPNOEA [None]
  - CYANOSIS [None]
  - CREPITATIONS [None]
  - LUNG INFECTION [None]
  - DECREASED APPETITE [None]
  - OXYGEN SATURATION DECREASED [None]
  - CARDIAC MURMUR [None]
  - LARGE INTESTINE PERFORATION [None]
  - DIVERTICULUM [None]
